FAERS Safety Report 13158032 (Version 1)
Quarter: 2017Q1

REPORT INFORMATION
  Report Type: Spontaneous
  Country: US (occurrence: US)
  Receive Date: 20170127
  Receipt Date: 20170127
  Transmission Date: 20170428
  Serious: No
  Sender: FDA-Public Use
  Company Number: US-PFIZER INC-2017033561

PATIENT
  Age: 71 Year
  Sex: Female

DRUGS (1)
  1. XANAX [Suspect]
     Active Substance: ALPRAZOLAM
     Dosage: UNK

REACTIONS (15)
  - Restlessness [Unknown]
  - Feeling abnormal [Unknown]
  - Headache [Unknown]
  - Decreased appetite [Unknown]
  - Fatigue [Unknown]
  - Tinnitus [Unknown]
  - Dizziness [Unknown]
  - Chest discomfort [Unknown]
  - Anxiety [Unknown]
  - Abnormal dreams [Unknown]
  - Dry mouth [Unknown]
  - Drug hypersensitivity [Unknown]
  - Agitation [Unknown]
  - Heart rate increased [Unknown]
  - Irritability [Unknown]
